FAERS Safety Report 7934146-8 (Version None)
Quarter: 2011Q4

REPORT INFORMATION
  Report Type: 
  Country: None (occurrence: None)
  Receive Date: 20111122
  Receipt Date: 20111111
  Transmission Date: 20120403
  Serious: Yes (Hospitalization)
  Sender: FDA-Public Use
  Company Number: JP-ELI_LILLY_AND_COMPANY-JP201109006115

PATIENT
  Age: 60 Year
  Sex: Female

DRUGS (1)
  1. FORTEO [Suspect]
     Dosage: UNK
     Route: 058
     Dates: start: 20110623, end: 20110923

REACTIONS (9)
  - HOSPITALISATION [None]
  - EAR DISCOMFORT [None]
  - PAIN IN EXTREMITY [None]
  - DIAPHRAGMATIC DISORDER [None]
  - MUSCULOSKELETAL STIFFNESS [None]
  - MYALGIA [None]
  - APTYALISM [None]
  - MUSCLE TIGHTNESS [None]
  - EYELID DISORDER [None]
